FAERS Safety Report 24610343 (Version 2)
Quarter: 2025Q2

REPORT INFORMATION
  Report Type: Report from Study
  Country: JP (occurrence: JP)
  Receive Date: 20241112
  Receipt Date: 20250521
  Transmission Date: 20250717
  Serious: Yes (Other)
  Sender: PFIZER
  Company Number: JP-PFIZER INC-202400293999

PATIENT
  Age: 79 Year
  Sex: Female

DRUGS (1)
  1. ELRANATAMAB [Suspect]
     Active Substance: ELRANATAMAB
     Dates: start: 20240703

REACTIONS (3)
  - Platelet count decreased [Unknown]
  - Gastric ulcer [Unknown]
  - Gastric haemorrhage [Not Recovered/Not Resolved]
